FAERS Safety Report 8034052 (Version 3)
Quarter: 2013Q1

REPORT INFORMATION
  Report Type: Spontaneous
  Country: BR (occurrence: BR)
  Receive Date: 20110713
  Receipt Date: 20130129
  Transmission Date: 20140127
  Serious: Yes (Other)
  Sender: FDA-Public Use
  Company Number: PHHY2011BR48045

PATIENT
  Sex: Female

DRUGS (6)
  1. DIOVAN [Suspect]
     Indication: HYPERTENSION
     Dosage: 160 MG, 2 TABLETS DAILY
     Route: 048
  2. DIOVAN [Interacting]
     Dosage: 160 MG, EVERY OTHER DAY
     Route: 048
  3. DIOVAN [Interacting]
     Dosage: 320 MG, 2 TABLETS DAILY
     Route: 048
  4. DIOVAN [Interacting]
     Dosage: 320 MG, EVERY OTHER DAY
     Route: 048
  5. CORTICOSTEROIDS [Suspect]
     Indication: DYSPNOEA
     Dosage: UNK UKN, UNK
  6. LOTAR [Concomitant]
     Dosage: UNK UKN, UNK

REACTIONS (9)
  - Asthma [Recovered/Resolved]
  - Dyspnoea [Recovered/Resolved]
  - Bronchitis [Recovered/Resolved]
  - Hypertension [Recovered/Resolved]
  - Neck pain [Recovered/Resolved]
  - Inappropriate schedule of drug administration [Recovered/Resolved]
  - Headache [Recovered/Resolved]
  - Blood pressure inadequately controlled [Recovered/Resolved]
  - Drug ineffective [Recovered/Resolved]
